FAERS Safety Report 5750500-7 (Version None)
Quarter: 2008Q2

REPORT INFORMATION
  Report Type: 
  Country: None (occurrence: None)
  Receive Date: 20080523
  Receipt Date: 20080523
  Transmission Date: 20081010
  Serious: Yes (Other)
  Sender: FDA-Public Use
  Company Number: None

PATIENT
  Sex: Male

DRUGS (3)
  1. BUPROPION HCL [Suspect]
     Indication: MAJOR DEPRESSION
     Dosage: 150 MG THREE TIMES PO
     Route: 048
     Dates: start: 20080512
  2. BUPROPION HCL [Suspect]
     Indication: PSYCHOTIC DISORDER
     Dosage: 150 MG THREE TIMES PO
     Route: 048
     Dates: start: 20080512
  3. WELLBUTRIN XL [Suspect]

REACTIONS (3)
  - DEPRESSION [None]
  - PHARMACEUTICAL PRODUCT COMPLAINT [None]
  - THERAPEUTIC RESPONSE UNEXPECTED WITH DRUG SUBSTITUTION [None]
